FAERS Safety Report 15883500 (Version 1)
Quarter: 2019Q1

REPORT INFORMATION
  Report Type: Spontaneous
  Country: DE (occurrence: DE)
  Receive Date: 20190129
  Receipt Date: 20190129
  Transmission Date: 20190417
  Serious: Yes (Hospitalization)
  Sender: FDA-Public Use
  Company Number: DE-ACCORD-103739

PATIENT
  Age: 83 Year
  Sex: Male
  Weight: 87 kg

DRUGS (11)
  1. PANTOPRAZOLE [Concomitant]
     Active Substance: PANTOPRAZOLE
     Dosage: 40 MG, 1-0-0-0, TABLETS
     Route: 048
  2. NEBIVOLOL. [Concomitant]
     Active Substance: NEBIVOLOL
     Dosage: 5 MG, 1-0-0-0, TABLETS
     Route: 048
  3. COLECALCIFEROL [Concomitant]
     Active Substance: CHOLECALCIFEROL
     Dosage: 1000 MG, 1-0-0-0,  TABLETS
     Route: 048
  4. IPRATROPIUM [Concomitant]
     Active Substance: IPRATROPIUM
     Dosage: 18 UG, 1-0-0-0, DOSIERAEROSOL
     Route: 055
  5. METFORMIN/SITAGLIPTIN [Concomitant]
     Active Substance: METFORMIN\SITAGLIPTIN
     Dosage: 850/50 MG, 1-0-1-0,  TABLETS
     Route: 048
  6. GEMCITABINE/GEMCITABINE HYDROCHLORIDE [Suspect]
     Active Substance: GEMCITABINE\GEMCITABINE HYDROCHLORIDE
     Indication: PRODUCT USED FOR UNKNOWN INDICATION
     Dosage: 1000 MG / M2, WEEKLY, SOLUTION FOR INJECTION / INFUSION
     Route: 042
  7. PACLITAXEL/PACLITAXEL LIPOSOME [Suspect]
     Active Substance: PACLITAXEL
     Indication: PRODUCT USED FOR UNKNOWN INDICATION
     Dosage: 125 MG / M2, WEEKLY, SOLUTION FOR INJECTION / INFUSION
     Route: 042
  8. TELMISARTAN. [Concomitant]
     Active Substance: TELMISARTAN
     Dosage: 40 MG, 1-0-0-0, TABLETTEN
     Route: 048
  9. HYDROCHLOROTHIAZIDE/TELMISARTAN [Concomitant]
     Dosage: 40/12.5 MG DAILY WITH TELMISARTAN, 1-0-0-0, TABLETS
     Route: 048
  10. METAMIZOLE SODIUM [Concomitant]
     Active Substance: METAMIZOLE SODIUM
     Dosage: 500 MG, IF NECESSARY, TABLETS
     Route: 048
  11. TAMSULOSIN/TAMSULOSIN HYDROCHLORIDE [Concomitant]
     Dosage: 0.4 MG, 1-0-0-0, TABLETTEN
     Route: 048

REACTIONS (4)
  - Dehydration [Recovered/Resolved]
  - Weight decreased [Recovered/Resolved]
  - General physical health deterioration [Recovered/Resolved]
  - Diarrhoea [Recovered/Resolved]
